FAERS Safety Report 17325648 (Version 1)
Quarter: 2020Q1

REPORT INFORMATION
  Report Type: Spontaneous
  Country: US (occurrence: US)
  Receive Date: 20200127
  Receipt Date: 20200127
  Transmission Date: 20200409
  Serious: No
  Sender: FDA-Public Use
  Company Number: US-REGENERON PHARMACEUTICALS, INC.-2019-31185

PATIENT

DRUGS (2)
  1. EYLEA [Suspect]
     Active Substance: AFLIBERCEPT
     Indication: AGE-RELATED MACULAR DEGENERATION
     Dosage: UNK
     Route: 031
     Dates: start: 201904, end: 201904
  2. AVASTIN [Suspect]
     Active Substance: BEVACIZUMAB
     Indication: NEOVASCULAR AGE-RELATED MACULAR DEGENERATION
     Dosage: IN THE LEFT EYE

REACTIONS (6)
  - Abnormal sensation in eye [Unknown]
  - Back disorder [Unknown]
  - Eye pain [Recovered/Resolved]
  - Eye disorder [Recovered/Resolved]
  - Vitreous floaters [Unknown]
  - Hypersensitivity [Unknown]
